FAERS Safety Report 18649717 (Version 1)
Quarter: 2020Q4

REPORT INFORMATION
  Report Type: Spontaneous
  Country: US (occurrence: US)
  Receive Date: 20201222
  Receipt Date: 20201222
  Transmission Date: 20210114
  Serious: Yes (Hospitalization)
  Sender: FDA-Public Use
  Company Number: US-COVIS PHARMA B.V.-2020COV00599

PATIENT
  Sex: Female

DRUGS (17)
  1. LISINOPRIL. [Concomitant]
     Active Substance: LISINOPRIL
  2. TYLENOL SINUS [Concomitant]
     Active Substance: ACETAMINOPHEN\DIPHENHYDRAMINE
  3. CLARITIN [Concomitant]
     Active Substance: LORATADINE
  4. DILANTIN [Concomitant]
     Active Substance: PHENYTOIN
  5. ZOCOR [Concomitant]
     Active Substance: SIMVASTATIN
  6. NITROSTAT [Concomitant]
     Active Substance: NITROGLYCERIN
  7. ZYRTEC [Concomitant]
     Active Substance: CETIRIZINE HYDROCHLORIDE
  8. BYDUREON [Suspect]
     Active Substance: EXENATIDE
     Indication: TYPE 2 DIABETES MELLITUS
     Dosage: 2 MG, 1X/WEEK
  9. GABAPENTIN. [Concomitant]
     Active Substance: GABAPENTIN
     Dosage: 300 MG, 2X/DAY
  10. SUDAFED [Concomitant]
     Active Substance: PSEUDOEPHEDRINE HYDROCHLORIDE
  11. OMEPRAZOLE MAGNESIUM. [Suspect]
     Active Substance: OMEPRAZOLE MAGNESIUM
     Dosage: UNK
     Route: 048
  12. ADVAIR HFA [Concomitant]
     Active Substance: FLUTICASONE PROPIONATE\SALMETEROL XINAFOATE
  13. SEROQUEL [Suspect]
     Active Substance: QUETIAPINE FUMARATE
     Indication: INSOMNIA
     Dosage: 25 MG
     Route: 048
  14. SEROQUEL [Suspect]
     Active Substance: QUETIAPINE FUMARATE
     Dosage: 100 MG, 1X/DAY AT BEDTIME
     Route: 048
  15. CARVEDILOL. [Concomitant]
     Active Substance: CARVEDILOL
  16. DAYQUIL COUGH [Concomitant]
  17. MUCINEX DM [Concomitant]
     Active Substance: DEXTROMETHORPHAN HYDROBROMIDE\GUAIFENESIN

REACTIONS (10)
  - Laryngitis [Unknown]
  - Visual impairment [Unknown]
  - Pneumonia [Unknown]
  - Pathogen resistance [Unknown]
  - Bronchitis [Unknown]
  - Infection [Unknown]
  - Intentional self-injury [Unknown]
  - Injection site pustule [Unknown]
  - Injection site vesicles [Unknown]
  - Gastritis [Unknown]
